FAERS Safety Report 8789723 (Version 1)
Quarter: 2012Q4

REPORT INFORMATION
  Report Type: Spontaneous
  Country: US (occurrence: None)
  Receive Date: 20120911
  Receipt Date: 20120911
  Transmission Date: 20130627
  Serious: Yes (Other)
  Sender: FDA-Public Use
  Company Number: None

PATIENT
  Age: 26 Year
  Sex: Female

DRUGS (1)
  1. RECLIPSEN [Suspect]
     Indication: CONTRACEPTION
     Route: 048
     Dates: start: 20120905, end: 20120910

REACTIONS (4)
  - Headache [None]
  - Nausea [None]
  - Diarrhoea [None]
  - Drug intolerance [None]
